FAERS Safety Report 25352242 (Version 1)
Quarter: 2025Q2

REPORT INFORMATION
  Report Type: Spontaneous
  Country: FR (occurrence: FR)
  Receive Date: 20250523
  Receipt Date: 20250523
  Transmission Date: 20250716
  Serious: Yes (Life-Threatening)
  Sender: TEVA
  Company Number: None

PATIENT
  Age: 76 Year
  Sex: Female
  Weight: 79.1 kg

DRUGS (2)
  1. BISOPROLOL [Suspect]
     Active Substance: BISOPROLOL
     Indication: Atrial fibrillation
     Dosage: 1 TABLET EVERY 48 HOURS, BISOPROLOL (ACID FUMARATE)
     Route: 048
     Dates: end: 20250428
  2. DIGOXIN [Suspect]
     Active Substance: DIGOXIN
     Indication: Atrial fibrillation
     Dosage: 1 TABLET EVERY 48 HOURS
     Route: 048
     Dates: end: 20250428

REACTIONS (3)
  - Sinoatrial block [Recovering/Resolving]
  - Hypotension [Recovering/Resolving]
  - Accidental overdose [Recovering/Resolving]

NARRATIVE: CASE EVENT DATE: 20250428
